FAERS Safety Report 25957058 (Version 1)
Quarter: 2025Q4

REPORT INFORMATION
  Report Type: Spontaneous
  Country: GB (occurrence: GB)
  Receive Date: 20251024
  Receipt Date: 20251024
  Transmission Date: 20260119
  Serious: Yes (Other)
  Sender: NOVARTIS
  Company Number: GB-002147023-NVSC2025GB161034

PATIENT
  Age: 50 Year
  Sex: Male

DRUGS (1)
  1. TASIGNA [Suspect]
     Active Substance: NILOTINIB
     Indication: Chronic myeloid leukaemia
     Dosage: 300 MG, BID
     Route: 065

REACTIONS (6)
  - Peripheral arterial occlusive disease [Unknown]
  - Urticaria [Unknown]
  - Rash papular [Unknown]
  - Rash [Unknown]
  - Blood cholesterol increased [Unknown]
  - Drug intolerance [Unknown]
